FAERS Safety Report 9452204 (Version 1)
Quarter: 2013Q3

REPORT INFORMATION
  Report Type: Spontaneous
  Country: US (occurrence: None)
  Receive Date: 20130808
  Receipt Date: 20130808
  Transmission Date: 20140515
  Serious: Yes (Death, Hospitalization)
  Sender: FDA-Public Use
  Company Number: None

PATIENT
  Age: 50 Year
  Sex: Female
  Weight: 106.6 kg

DRUGS (1)
  1. AVELOX [Suspect]
     Dates: start: 20130521, end: 20130521

REACTIONS (5)
  - Renal failure [None]
  - Hepatic failure [None]
  - Stevens-Johnson syndrome [None]
  - Pulseless electrical activity [None]
  - Dyspnoea [None]
